FAERS Safety Report 14728263 (Version 1)
Quarter: 2018Q2

REPORT INFORMATION
  Report Type: Spontaneous
  Country: US (occurrence: US)
  Receive Date: 20180402
  Receipt Date: 20180402
  Transmission Date: 20180711
  Serious: Yes (Life-Threatening)
  Sender: FDA-Public Use
  Company Number: None

PATIENT
  Age: 32 Year
  Sex: Female
  Weight: 108 kg

DRUGS (1)
  1. STELARA [Suspect]
     Active Substance: USTEKINUMAB
     Indication: CROHN^S DISEASE
     Dosage: ?          QUANTITY:1 INFUSION;OTHER FREQUENCY:EVERY 8 WEEKS;?
     Route: 042
     Dates: start: 20180402, end: 20180402

REACTIONS (2)
  - Hypersensitivity [None]
  - Dyspnoea [None]

NARRATIVE: CASE EVENT DATE: 20180402
